FAERS Safety Report 7961888-0 (Version None)
Quarter: 2012Q1

REPORT INFORMATION
  Report Type: 
  Country: None (occurrence: None)
  Receive Date: 20111202
  Receipt Date: 20111202
  Transmission Date: 20120608
  Serious: Yes (Hospitalization)
  Sender: FDA-Public Use
  Company Number: None

PATIENT
  Sex: Female
  Weight: 81.6475 kg

DRUGS (1)
  1. H.P. ACTHAR GEL [Suspect]
     Indication: MULTIPLE SCLEROSIS
     Dosage: 1 CC @ PER DAY FOR 5 DAYS
     Dates: start: 20111108

REACTIONS (5)
  - BODY TEMPERATURE DECREASED [None]
  - FACE OEDEMA [None]
  - OEDEMA PERIPHERAL [None]
  - EYELID OEDEMA [None]
  - OROPHARYNGEAL PAIN [None]
